FAERS Safety Report 17142603 (Version 1)
Quarter: 2019Q4

REPORT INFORMATION
  Report Type: Spontaneous
  Country: US (occurrence: US)
  Receive Date: 20191211
  Receipt Date: 20191211
  Transmission Date: 20200122
  Serious: No
  Sender: FDA-Public Use
  Company Number: US-PFIZER INC-2019531618

PATIENT

DRUGS (1)
  1. ADVIL SINUS CONGESTION AND PAIN [Suspect]
     Active Substance: IBUPROFEN\PHENYLEPHRINE HYDROCHLORIDE
     Indication: NASOPHARYNGITIS
     Dosage: UNK, ONCE A DAY

REACTIONS (4)
  - Intentional product misuse [Unknown]
  - Malaise [Unknown]
  - Influenza [Unknown]
  - Wrong product administered [Unknown]

NARRATIVE: CASE EVENT DATE: 20191207
